FAERS Safety Report 8546031-1 (Version None)
Quarter: 2012Q3

REPORT INFORMATION
  Report Type: 
  Country: None (occurrence: None)
  Receive Date: 20120727
  Receipt Date: 20120716
  Transmission Date: 20120928
  Serious: Yes (Hospitalization, Disabling, Other)
  Sender: FDA-Public Use
  Company Number: US-009507513-1201USA02542

PATIENT

DRUGS (4)
  1. FOSAMAX [Suspect]
     Dosage: 70 MG, QW
     Route: 048
     Dates: start: 20040101, end: 20090122
  2. FOSAMAX [Suspect]
     Indication: OSTEOPENIA
     Route: 048
     Dates: start: 20011022
  3. FOSAMAX [Suspect]
     Dosage: 70 MG, UNK
     Route: 048
     Dates: start: 20031111
  4. ACTONEL [Suspect]
     Indication: OSTEOPENIA
     Dosage: 150 MG, QM
     Route: 048
     Dates: start: 20090122, end: 20100120

REACTIONS (40)
  - OSTEOARTHRITIS [None]
  - NEUROPATHY PERIPHERAL [None]
  - ASTHENIA [None]
  - TOOTH IMPACTED [None]
  - LUMBAR RADICULOPATHY [None]
  - WEIGHT INCREASED [None]
  - FEMUR FRACTURE [None]
  - HYPERTENSION [None]
  - HYPERCHOLESTEROLAEMIA [None]
  - LOSS OF CONSCIOUSNESS [None]
  - ARTHROPATHY [None]
  - CHRONIC OBSTRUCTIVE PULMONARY DISEASE [None]
  - PHARYNGITIS [None]
  - PULMONARY GRANULOMA [None]
  - IMPAIRED HEALING [None]
  - TREATMENT FAILURE [None]
  - MYALGIA [None]
  - ANAEMIA [None]
  - OSTEOPOROSIS [None]
  - BRONCHITIS [None]
  - LIP DISORDER [None]
  - HYSTERECTOMY [None]
  - RHINITIS ALLERGIC [None]
  - UPPER RESPIRATORY TRACT INFECTION [None]
  - RASH [None]
  - INTERVERTEBRAL DISC PROTRUSION [None]
  - CORONARY ARTERY DISEASE [None]
  - PERIPHERAL VASCULAR DISORDER [None]
  - HYPOTHYROIDISM [None]
  - CONSTIPATION [None]
  - RENAL FAILURE CHRONIC [None]
  - TYPE 2 DIABETES MELLITUS [None]
  - ASTHMA [None]
  - GASTRITIS [None]
  - GASTROENTERITIS [None]
  - SCOLIOSIS [None]
  - MUSCLE SPASMS [None]
  - DIARRHOEA [None]
  - CEREBROVASCULAR ACCIDENT [None]
  - RHINITIS [None]
